FAERS Safety Report 4563337-1 (Version None)
Quarter: 2005Q1

REPORT INFORMATION
  Report Type: 
  Country: None (occurrence: None)
  Receive Date: 20050128
  Receipt Date: 20040128
  Transmission Date: 20050727
  Serious: No
  Sender: FDA-Public Use
  Company Number: US-GLAXOSMITHKLINE-A0495378A

PATIENT
  Age: 8 Year
  Sex: Male

DRUGS (2)
  1. WELLBUTRIN [Suspect]
     Indication: AGGRESSION
     Dosage: 150MG PER DAY
     Route: 048
     Dates: start: 20031201
  2. CONCERTA [Concomitant]

REACTIONS (1)
  - STOMACH DISCOMFORT [None]
